FAERS Safety Report 8243234-0 (Version None)
Quarter: 2012Q1

REPORT INFORMATION
  Report Type: 
  Country: None (occurrence: None)
  Receive Date: 20120329
  Receipt Date: 20120315
  Transmission Date: 20120608
  Serious: Yes (Other)
  Sender: FDA-Public Use
  Company Number: GB-MYLANLABS-2011S1025891

PATIENT
  Age: 49 Year
  Weight: 60 kg

DRUGS (5)
  1. FLUOXETINE [Suspect]
     Indication: ANXIETY
     Dates: start: 20110901
  2. CLARITHROMYCIN [Interacting]
     Indication: LOWER RESPIRATORY TRACT INFECTION
     Dates: start: 20111018
  3. TOLTERODINE TARTRATE [Interacting]
     Indication: POLLAKIURIA
     Route: 048
     Dates: start: 20111018, end: 20111019
  4. TOLTERODINE TARTRATE [Interacting]
     Indication: BLADDER IRRITATION
     Route: 048
     Dates: start: 20111018, end: 20111019
  5. FLUOXETINE [Interacting]
     Indication: DEPRESSION
     Dates: start: 20110901

REACTIONS (3)
  - DRUG INTERACTION [None]
  - EPILEPSY [None]
  - POLLAKIURIA [None]
